FAERS Safety Report 24210899 (Version 1)
Quarter: 2024Q3

REPORT INFORMATION
  Report Type: Spontaneous
  Country: US (occurrence: None)
  Receive Date: 20240813
  Receipt Date: 20240813
  Transmission Date: 20241017
  Serious: Yes (unspecified)
  Sender: Public
  Company Number: None

PATIENT
  Sex: Female

DRUGS (1)
  1. TEPEZZA [Suspect]
     Active Substance: TEPROTUMUMAB-TRBW

REACTIONS (5)
  - Ear discomfort [None]
  - Tinnitus [None]
  - Intentional dose omission [None]
  - Gingival pain [None]
  - Pain in jaw [None]

NARRATIVE: CASE EVENT DATE: 20240802
